FAERS Safety Report 6057507-3 (Version None)
Quarter: 2009Q1

REPORT INFORMATION
  Report Type: 
  Country: None (occurrence: None)
  Receive Date: 20090127
  Receipt Date: 20090127
  Transmission Date: 20090719
  Serious: No
  Sender: FDA-Public Use
  Company Number: None

PATIENT
  Age: 65 Year
  Sex: Male
  Weight: 86.1834 kg

DRUGS (1)
  1. ZICAM COLD REMEDY GEL SWABS 20 MEDICATED SWABS MATRIXX [Suspect]
     Indication: NASOPHARYNGITIS
     Dosage: ONE SWAB EVERY FOUR HOURS NASAL
     Route: 045
     Dates: start: 20081215, end: 20081218

REACTIONS (3)
  - AGEUSIA [None]
  - ANOSMIA [None]
  - SINUSITIS [None]
